FAERS Safety Report 10102934 (Version 2)
Quarter: 2014Q2

REPORT INFORMATION
  Report Type: Other
  Country: US (occurrence: US)
  Receive Date: 20140424
  Receipt Date: 20140609
  Transmission Date: 20141212
  Serious: Yes (Hospitalization, Other)
  Sender: FDA-Public Use
  Company Number: US-GSKPPD-2014GSK000172

PATIENT
  Age: 59 Year
  Sex: Female

DRUGS (6)
  1. AVANDIA [Suspect]
     Indication: DIABETES MELLITUS
     Route: 048
     Dates: start: 20090522, end: 20100109
  2. COREG [Concomitant]
     Route: 048
  3. EFFIENT [Concomitant]
     Route: 048
  4. HCTZ [Concomitant]
     Route: 048
  5. PRINIVIL [Concomitant]
     Route: 048
  6. NITROGLYCERIN [Concomitant]
     Route: 048

REACTIONS (1)
  - Acute myocardial infarction [Recovered/Resolved]
